FAERS Safety Report 23421060 (Version 1)
Quarter: 2024Q1

REPORT INFORMATION
  Report Type: Report from Study
  Country: CA (occurrence: CA)
  Receive Date: 20240119
  Receipt Date: 20240119
  Transmission Date: 20240410
  Serious: Yes (Death, Hospitalization, Other)
  Sender: FDA-Public Use
  Company Number: None

PATIENT
  Age: 72 Year
  Sex: Male

DRUGS (5)
  1. AMLODIPINE [Suspect]
     Active Substance: AMLODIPINE BESYLATE
     Indication: Product used for unknown indication
     Route: 048
  2. SANDOSTATIN [Suspect]
     Active Substance: OCTREOTIDE ACETATE
     Indication: Gastroenteropancreatic neuroendocrine tumour disease
     Route: 030
  3. LOVASTATIN [Suspect]
     Active Substance: LOVASTATIN
     Indication: Product used for unknown indication
     Route: 048
  4. ASPIRIN [Concomitant]
     Active Substance: ASPIRIN
     Indication: Product used for unknown indication
     Route: 065
  5. ASPIRIN [Concomitant]
     Active Substance: ASPIRIN
     Indication: Product used for unknown indication
     Route: 048

REACTIONS (14)
  - Asthenia [Fatal]
  - Blood pressure systolic increased [Fatal]
  - Decreased appetite [Fatal]
  - Erythema [Fatal]
  - Gait disturbance [Fatal]
  - Gastric ulcer [Fatal]
  - Incorrect dose administered [Fatal]
  - Injection site pain [Fatal]
  - Lethargy [Fatal]
  - Mobility decreased [Fatal]
  - Needle issue [Fatal]
  - Pulmonary mass [Fatal]
  - Sciatica [Fatal]
  - Weight decreased [Fatal]
